FAERS Safety Report 18375074 (Version 1)
Quarter: 2020Q4

REPORT INFORMATION
  Report Type: Spontaneous
  Country: US (occurrence: US)
  Receive Date: 20201013
  Receipt Date: 20201013
  Transmission Date: 20210114
  Serious: No
  Sender: FDA-Public Use
  Company Number: US-BAUSCH-BL-2020-027866

PATIENT
  Age: 61 Year
  Sex: Male

DRUGS (4)
  1. TRULANCE [Suspect]
     Active Substance: PLECANATIDE
     Indication: DIVERTICULUM
     Route: 048
     Dates: start: 20200919, end: 20200923
  2. DICYCLOMINE [Suspect]
     Active Substance: DICYCLOMINE HYDROCHLORIDE
     Indication: MUSCLE SPASMS
  3. TRULANCE [Suspect]
     Active Substance: PLECANATIDE
     Indication: OFF LABEL USE
  4. DICYCLOMINE [Suspect]
     Active Substance: DICYCLOMINE HYDROCHLORIDE
     Indication: DIVERTICULUM
     Dosage: AS NEEDED, TAKING FOR PAST 3 YEARS
     Route: 048
     Dates: start: 2017

REACTIONS (5)
  - Condition aggravated [Recovered/Resolved]
  - Fatigue [Not Recovered/Not Resolved]
  - Diverticulum [Recovered/Resolved]
  - Malaise [Not Recovered/Not Resolved]
  - Off label use [Unknown]

NARRATIVE: CASE EVENT DATE: 202009
